FAERS Safety Report 4566939-1 (Version None)
Quarter: 2005Q1

REPORT INFORMATION
  Report Type: 
  Country: None (occurrence: None)
  Receive Date: 20050201
  Receipt Date: 20030423
  Transmission Date: 20050727
  Serious: Yes (Other)
  Sender: FDA-Public Use
  Company Number: US-BRISTOL-MYERS SQUIBB COMPANY-12254256

PATIENT
  Age: 29 Year
  Sex: Female

DRUGS (8)
  1. STADOL [Suspect]
     Indication: MIGRAINE
     Route: 045
     Dates: start: 19941010, end: 19970101
  2. STADOL [Suspect]
     Indication: PAIN
     Route: 045
     Dates: start: 19941010, end: 19970101
  3. NORTRIPTYLINE HCL [Concomitant]
  4. PROPOXYPHENE NAPSYLATE [Concomitant]
  5. HYDROCODONE + ACETAMINOPHEN [Concomitant]
  6. NEURONTIN [Concomitant]
  7. PROMETHAZINE [Concomitant]
  8. CARISOPRODOL [Concomitant]

REACTIONS (1)
  - DEPENDENCE [None]
